FAERS Safety Report 10159121 (Version 2)
Quarter: 2014Q2

REPORT INFORMATION
  Report Type: Spontaneous
  Country: US (occurrence: US)
  Receive Date: 20140508
  Receipt Date: 20140524
  Transmission Date: 20141212
  Serious: Yes (Death, Other)
  Sender: FDA-Public Use
  Company Number: US-AMGEN-USASP2014032464

PATIENT
  Age: 87 Year
  Sex: Female

DRUGS (17)
  1. PROLIA [Suspect]
     Indication: SENILE OSTEOPOROSIS
     Dosage: 60 MG, UNK
     Route: 058
     Dates: start: 20130220
  2. PHENERGAN WITH CODEINE             /00072201/ [Concomitant]
     Indication: COUGH
     Dosage: 6.25 MG, EVERY FOUR TO SIX HOURS
     Route: 048
  3. ALBUTEROL                          /00139501/ [Concomitant]
     Indication: DYSPNOEA
     Dosage: 108 MUG, AS NECESSARY
  4. ALBUTEROL                          /00139501/ [Concomitant]
     Indication: WHEEZING
  5. NORCO [Concomitant]
     Indication: PAIN
     Dosage: 325 MG, UNK
  6. LEVOTHYROXINE [Concomitant]
     Dosage: 100 MUG, QD
     Route: 048
  7. NEURONTIN [Concomitant]
     Dosage: 1200 MG, TID
     Route: 048
  8. ZYRTEC [Concomitant]
     Indication: PRURITUS
     Dosage: 10 MG, QD
     Route: 048
  9. CYMBALTA [Concomitant]
     Dosage: 60 MG, QD
     Route: 048
  10. VITAMIN E                          /00110501/ [Concomitant]
     Dosage: 1000 UNIT, QD
  11. ADDERALL [Concomitant]
     Dosage: 30 MG, BID
     Route: 048
  12. GRAPE SEED                         /01364601/ [Concomitant]
     Dosage: UNK UNK, QD
     Route: 048
  13. VITAMIN D3 [Concomitant]
     Dosage: 5000 UNIT, QD
     Route: 048
  14. ECOTRIN [Concomitant]
     Dosage: 81 MG, QD
     Route: 048
  15. FISH OIL [Concomitant]
     Dosage: 1000 MG, QD
     Route: 048
  16. ADVIL                              /00044201/ [Concomitant]
     Indication: PAIN
     Dosage: 800 MG, Q4H
     Route: 048
  17. CYANOCOBALAMIN [Concomitant]
     Dosage: 1000 MUG/ML, UNK
     Route: 030
     Dates: start: 20120920, end: 20140117

REACTIONS (6)
  - Clavicle fracture [Unknown]
  - Pneumonia influenzal [Fatal]
  - Malaise [Unknown]
  - Attention deficit/hyperactivity disorder [Unknown]
  - Anxiety [Unknown]
  - Insomnia [Unknown]
